FAERS Safety Report 9844711 (Version 1)
Quarter: 2014Q1

REPORT INFORMATION
  Report Type: Spontaneous
  Country: TR (occurrence: None)
  Receive Date: 20140122
  Receipt Date: 20140122
  Transmission Date: 20141002
  Serious: Yes (Hospitalization)
  Sender: FDA-Public Use
  Company Number: ABR_01385_2014

PATIENT
  Sex: Female

DRUGS (2)
  1. LAMOTRIGINE [Suspect]
     Indication: MATERNAL EXPOSURE DURING PREGNANCY
     Dosage: DF
     Route: 064
  2. VALPROIC ACID (VALPROIC ACID) [Suspect]
     Indication: MATERNAL EXPOSURE DURING PREGNANCY
     Dosage: DF
     Route: 064

REACTIONS (7)
  - Exposure during pregnancy [None]
  - Feeding disorder neonatal [None]
  - Caesarean section [None]
  - Hypotonia [None]
  - Neonatal disorder [None]
  - Hyporeflexia [None]
  - Respiratory rate increased [None]
